FAERS Safety Report 25178528 (Version 1)
Quarter: 2025Q2

REPORT INFORMATION
  Report Type: Spontaneous
  Country: ES (occurrence: ES)
  Receive Date: 20250409
  Receipt Date: 20250409
  Transmission Date: 20250716
  Serious: Yes (Hospitalization, Other)
  Sender: AMGEN
  Company Number: ES-AMGEN-ESPSP2025063185

PATIENT

DRUGS (1)
  1. ROMIPLOSTIM [Suspect]
     Active Substance: ROMIPLOSTIM
     Indication: Immune thrombocytopenia
     Route: 065

REACTIONS (6)
  - Unevaluable event [Unknown]
  - COVID-19 pneumonia [Unknown]
  - Cerebral venous sinus thrombosis [Unknown]
  - Ischaemia [Unknown]
  - Dyspepsia [Unknown]
  - Hypertension [Unknown]
